FAERS Safety Report 11814967 (Version 2)
Quarter: 2016Q1

REPORT INFORMATION
  Report Type: Spontaneous
  Country: US (occurrence: US)
  Receive Date: 20151209
  Receipt Date: 20160314
  Transmission Date: 20160525
  Serious: No
  Sender: FDA-Public Use
  Company Number: US-SA-2015SA195253

PATIENT
  Age: 51 Year
  Sex: Female

DRUGS (1)
  1. TOUJEO [Suspect]
     Active Substance: INSULIN GLARGINE
     Indication: TYPE 1 DIABETES MELLITUS
     Dosage: 8 UNITS AND 10 UNITS
     Route: 065
     Dates: start: 201506

REACTIONS (2)
  - Drug administration error [Unknown]
  - Blood glucose increased [Recovered/Resolved]
